FAERS Safety Report 5540641-1 (Version None)
Quarter: 2007Q4

REPORT INFORMATION
  Report Type: 
  Country: None (occurrence: None)
  Receive Date: 20071129
  Receipt Date: 20070718
  Transmission Date: 20080405
  Serious: Yes (Other)
  Sender: FDA-Public Use
  Company Number: US200707004653

PATIENT
  Age: 21 Year
  Sex: Female

DRUGS (5)
  1. ZYPREXA [Suspect]
     Dates: start: 20060801
  2. LEXAPRO [Concomitant]
  3. EFFEXOR [Concomitant]
  4. RISPERIDONE [Concomitant]
  5. NECON (ETHINYLESTRADIOL, NORETHISTERONE) [Concomitant]

REACTIONS (2)
  - INCREASED APPETITE [None]
  - WEIGHT INCREASED [None]
